FAERS Safety Report 15974285 (Version 2)
Quarter: 2019Q1

REPORT INFORMATION
  Report Type: Report from Study
  Country: ZA (occurrence: ZA)
  Receive Date: 20190218
  Receipt Date: 20190222
  Transmission Date: 20190418
  Serious: Yes (Hospitalization)
  Sender: FDA-Public Use
  Company Number: ZA-SA-2019SA033487

PATIENT
  Age: 50 Year
  Sex: Male

DRUGS (1)
  1. INSULIN GLARGINE [Suspect]
     Active Substance: INSULIN GLARGINE
     Dosage: 20 U, HS, AT BT (BED TIME)
     Dates: start: 20181219

REACTIONS (2)
  - Skin graft [Unknown]
  - Diabetic foot infection [Not Recovered/Not Resolved]

NARRATIVE: CASE EVENT DATE: 20190128
